FAERS Safety Report 6746175-0 (Version None)
Quarter: 2010Q2

REPORT INFORMATION
  Report Type: 
  Country: None (occurrence: None)
  Receive Date: 20100528
  Receipt Date: 20091029
  Transmission Date: 20101027
  Serious: No
  Sender: FDA-Public Use
  Company Number: US-ASTRAZENECA-2009SE23280

PATIENT
  Age: 60 Year
  Sex: Female

DRUGS (6)
  1. PRILOSEC [Suspect]
     Indication: GASTROOESOPHAGEAL REFLUX DISEASE
     Route: 048
  2. SYMBICORT [Suspect]
     Indication: ASTHMA
     Dosage: 160/4.5 ONE PUFF IN THE MORNING AND ONE IN EVENING
     Route: 055
  3. SYNTHROID [Concomitant]
  4. SYMBICORT [Concomitant]
  5. SINGULAIR [Concomitant]
  6. TRIAMTERENE [Concomitant]

REACTIONS (3)
  - DRUG INEFFECTIVE [None]
  - DYSPEPSIA [None]
  - INCORRECT DOSE ADMINISTERED [None]
